FAERS Safety Report 7498710-5 (Version None)
Quarter: 2011Q2

REPORT INFORMATION
  Report Type: 
  Country: None (occurrence: None)
  Receive Date: 20110524
  Receipt Date: 20110512
  Transmission Date: 20111010
  Serious: Yes (Hospitalization)
  Sender: FDA-Public Use
  Company Number: US-JNJFOC-20110303570

PATIENT
  Sex: Female

DRUGS (12)
  1. ALDOSTERONE ANTAGONISTS [Concomitant]
     Route: 065
  2. FENTANYL-100 [Suspect]
     Indication: PRODUCT USED FOR UNKNOWN INDICATION
     Route: 065
  3. CALCIUM CHANNEL BLOCKER [Concomitant]
     Route: 065
  4. DIURETICS [Concomitant]
     Route: 065
  5. NITRATES [Concomitant]
     Route: 065
  6. METFFORMIN HYDROCHLORIDE [Suspect]
     Indication: TYPE 2 DIABETES MELLITUS
     Route: 048
     Dates: start: 20101008, end: 20101115
  7. BETA BLOCKER AGENT [Concomitant]
     Route: 065
  8. SAXAGLIPTIN [Suspect]
     Indication: TYPE 2 DIABETES MELLITUS
     Route: 048
     Dates: start: 20100811
  9. PLACEBO [Suspect]
     Indication: TYPE 2 DIABETES MELLITUS
     Route: 048
     Dates: start: 20100811
  10. RENIN-ANGIOTENSIN SYSTEM, AGENTS ACTING ON [Concomitant]
     Route: 065
  11. SITAGLIPTIN PHOSPHATE [Suspect]
     Indication: PRODUCT USED FOR UNKNOWN INDICATION
     Route: 065
     Dates: start: 20101116, end: 20110209
  12. STATINS [Concomitant]
     Route: 065

REACTIONS (1)
  - PSYCHOSOMATIC DISEASE [None]
